FAERS Safety Report 12899693 (Version 5)
Quarter: 2017Q1

REPORT INFORMATION
  Report Type: Spontaneous
  Country: CA (occurrence: CA)
  Receive Date: 20161101
  Receipt Date: 20170201
  Transmission Date: 20170428
  Serious: Yes (Hospitalization, Other)
  Sender: FDA-Public Use
  Company Number: CA-GLAXOSMITHKLINE-CA2016GSK159057

PATIENT
  Age: 52 Year
  Sex: Female

DRUGS (3)
  1. NUCALA [Suspect]
     Active Substance: MEPOLIZUMAB
     Indication: ASTHMA
     Dosage: 100 MG, Z
     Route: 058
     Dates: start: 20161108, end: 20161108
  2. CYMBALTA [Suspect]
     Active Substance: DULOXETINE HYDROCHLORIDE
     Indication: PRODUCT USED FOR UNKNOWN INDICATION
     Dosage: UNK
  3. ADVAIR HFA [Suspect]
     Active Substance: FLUTICASONE PROPIONATE\SALMETEROL XINAFOATE
     Indication: ASTHMA
     Dosage: UNK

REACTIONS (11)
  - Asthma [Unknown]
  - Endotracheal intubation [Unknown]
  - Loss of consciousness [Recovered/Resolved]
  - Coma [Unknown]
  - Emotional distress [Recovered/Resolved]
  - Eye movement disorder [Recovered/Resolved]
  - Clonus [Recovered/Resolved]
  - Dyspnoea [Recovered/Resolved]
  - Seizure [Not Recovered/Not Resolved]
  - Chest discomfort [Recovered/Resolved]
  - Drug ineffective [Unknown]

NARRATIVE: CASE EVENT DATE: 20161108
